FAERS Safety Report 8475931-6 (Version None)
Quarter: 2012Q2

REPORT INFORMATION
  Report Type: 
  Country: None (occurrence: None)
  Receive Date: 20120621
  Receipt Date: 20120611
  Transmission Date: 20120825
  Serious: Yes (Hospitalization)
  Sender: FDA-Public Use
  Company Number: 2012SP032134

PATIENT
  Age: 22 Year
  Sex: Male

DRUGS (1)
  1. NOXAFIL [Suspect]
     Indication: FUNGAL INFECTION
     Dosage: 12 DF;QD;PO
     Route: 048
     Dates: start: 20120602, end: 20120611

REACTIONS (3)
  - INTENTIONAL OVERDOSE [None]
  - PURPURA [None]
  - URTICARIA [None]
